FAERS Safety Report 21689489 (Version 1)
Quarter: 2022Q4

REPORT INFORMATION
  Report Type: Spontaneous
  Country: DE (occurrence: None)
  Receive Date: 20221206
  Receipt Date: 20221206
  Transmission Date: 20230113
  Serious: Yes (Other)
  Sender: FDA-Public Use
  Company Number: 2022A392107

PATIENT

DRUGS (8)
  1. EVUSHELD [Suspect]
     Active Substance: CILGAVIMAB\TIXAGEVIMAB
     Indication: COVID-19 prophylaxis
     Route: 030
     Dates: start: 20220411
  2. RITUXIMAB [Concomitant]
     Active Substance: RITUXIMAB
     Indication: Immunomodulatory therapy
     Route: 042
     Dates: start: 20220916
  3. COVID-19 VACCINE [Concomitant]
     Route: 065
     Dates: start: 20210913
  4. COVID-19 VACCINE [Concomitant]
     Route: 065
     Dates: start: 202202
  5. COVID-19 VACCINE [Concomitant]
     Route: 065
     Dates: start: 202203
  6. AMLODIPINE [Concomitant]
     Active Substance: AMLODIPINE BESYLATE
     Route: 065
  7. NIFEDIPINE [Concomitant]
     Active Substance: NIFEDIPINE
     Route: 065
  8. SILDENAFIL [Concomitant]
     Active Substance: SILDENAFIL
     Route: 065

REACTIONS (4)
  - Arthritis [Unknown]
  - Arthralgia [Unknown]
  - Pain [Unknown]
  - Myalgia [Unknown]
